FAERS Safety Report 20795412 (Version 1)
Quarter: 2022Q2

REPORT INFORMATION
  Report Type: Spontaneous
  Country: IT (occurrence: IT)
  Receive Date: 20220506
  Receipt Date: 20220506
  Transmission Date: 20220721
  Serious: Yes (Other)
  Sender: FDA-Public Use
  Company Number: None

PATIENT
  Age: 67 Year
  Sex: Male

DRUGS (2)
  1. MEKTOVI [Suspect]
     Active Substance: BINIMETINIB
     Indication: Metastatic malignant melanoma
     Dosage: 90 MG
     Route: 048
     Dates: start: 20210728
  2. BRAFTOVI [Concomitant]
     Active Substance: ENCORAFENIB
     Indication: Metastatic malignant melanoma
     Dosage: 450 MG, UNK
     Route: 048

REACTIONS (1)
  - Retinal vascular occlusion [Unknown]

NARRATIVE: CASE EVENT DATE: 20220406
